FAERS Safety Report 5473515-5 (Version None)
Quarter: 2007Q4

REPORT INFORMATION
  Report Type: 
  Country: None (occurrence: None)
  Receive Date: 20071001
  Receipt Date: 20070919
  Transmission Date: 20080405
  Serious: Yes (Hospitalization)
  Sender: FDA-Public Use
  Company Number: AT-PFIZER INC-2007078552

PATIENT
  Age: 70 Year
  Sex: Male

DRUGS (5)
  1. NORVASC [Suspect]
  2. SORTIS [Interacting]
  3. CONCOR [Interacting]
  4. DANCOR [Interacting]
  5. RABEPRAZOLE SODIUM [Interacting]

REACTIONS (3)
  - DRUG INTERACTION [None]
  - LEUKOPENIA [None]
  - THROMBOCYTOPENIA [None]
